FAERS Safety Report 7894483-2 (Version None)
Quarter: 2011Q4

REPORT INFORMATION
  Report Type: 
  Country: None (occurrence: None)
  Receive Date: 20111106
  Receipt Date: 20110826
  Transmission Date: 20120403
  Serious: No
  Sender: FDA-Public Use
  Company Number: US-AMGEN-USASP2011043768

PATIENT
  Age: 63 Year
  Sex: Male

DRUGS (16)
  1. DICLOFENAC SODIUM [Concomitant]
  2. CELEBREX [Concomitant]
  3. LYRICA [Concomitant]
  4. ENBREL [Suspect]
     Indication: PSORIATIC ARTHROPATHY
     Dosage: 50 MG, UNK
     Dates: start: 20110301
  5. ACTOS [Concomitant]
  6. OMEPRAZOLE [Concomitant]
  7. COMBIGAN [Concomitant]
  8. MAXZIDE [Concomitant]
  9. MUSE [Concomitant]
  10. AMBIEN CR [Concomitant]
  11. AZOPT [Concomitant]
  12. ENBREL [Suspect]
     Dates: start: 20110301
  13. METFORMIN HCL [Concomitant]
  14. DOVONEX [Concomitant]
  15. LIPITOR [Concomitant]
  16. TACLONEX [Concomitant]

REACTIONS (2)
  - DIABETES MELLITUS [None]
  - SKIN ULCER [None]
